FAERS Safety Report 11774741 (Version 4)
Quarter: 2016Q2

REPORT INFORMATION
  Report Type: Report from Study
  Country: US (occurrence: US)
  Receive Date: 20151124
  Receipt Date: 20160418
  Transmission Date: 20160815
  Serious: Yes (Hospitalization)
  Sender: FDA-Public Use
  Company Number: US-B.I. PHARMACEUTICALS,INC./RIDGEFIELD-2015-BI-65294BP

PATIENT
  Sex: Male

DRUGS (1)
  1. OFEV [Suspect]
     Active Substance: NINTEDANIB
     Indication: IDIOPATHIC PULMONARY FIBROSIS
     Dosage: 300 MG
     Route: 048
     Dates: start: 20151001

REACTIONS (6)
  - Productive cough [Unknown]
  - Catheterisation cardiac [Unknown]
  - Insomnia [Unknown]
  - Atrioventricular block [Unknown]
  - Dyspnoea exertional [Unknown]
  - Dyspnoea [Unknown]
